FAERS Safety Report 11241062 (Version 1)
Quarter: 2015Q3

REPORT INFORMATION
  Report Type: Spontaneous
  Country: FR (occurrence: FR)
  Receive Date: 20150706
  Receipt Date: 20150706
  Transmission Date: 20151125
  Serious: Yes (Other)
  Sender: FDA-Public Use
  Company Number: FR-GLAXOSMITHKLINE INC.-FR2015GSK095039

PATIENT
  Age: 40 Year
  Sex: Female

DRUGS (10)
  1. LAPATINIB [Suspect]
     Active Substance: LAPATINIB
     Dosage: 1000 MG, QD
     Route: 065
     Dates: start: 200907
  2. CAPECITABINE. [Suspect]
     Active Substance: CAPECITABINE
     Indication: CEREBRAL DISORDER
     Dosage: 2000 MG/M2, QD (DAYS 1-14)
     Route: 065
     Dates: start: 200806
  3. LAPATINIB [Suspect]
     Active Substance: LAPATINIB
     Dosage: 1000 MG, QD (4 PILLS/DAY)
     Route: 065
  4. LAPATINIB [Suspect]
     Active Substance: LAPATINIB
     Dosage: 5 DF, QD (5 PILLS)
     Route: 065
     Dates: start: 201006, end: 201010
  5. LAPATINIB [Suspect]
     Active Substance: LAPATINIB
     Indication: CEREBRAL DISORDER
     Dosage: 1250 MG, QD (5 PILLS OF 250 MG/DAY)
     Route: 065
     Dates: start: 201006
  6. LAPATINIB [Suspect]
     Active Substance: LAPATINIB
     Dosage: 1500 MG, QD
     Route: 065
     Dates: end: 201010
  7. LAPATINIB [Suspect]
     Active Substance: LAPATINIB
     Dosage: 1000 MG, QD (9 CYCLE)
     Route: 065
  8. LAPATINIB [Suspect]
     Active Substance: LAPATINIB
     Dosage: 1000 MG, QD
     Route: 065
     Dates: start: 201002
  9. LAPATINIB [Suspect]
     Active Substance: LAPATINIB
     Dosage: 1250 MG, QD (5 PILLS OF 250 MG/DAY)
     Route: 065
  10. CAPECITABINE. [Suspect]
     Active Substance: CAPECITABINE
     Dosage: 2000 MG/M2, QD (DAYS 14-21 DAYS)
     Route: 065
     Dates: end: 200903

REACTIONS (9)
  - Seizure [Unknown]
  - Diarrhoea [Unknown]
  - Paronychia [Unknown]
  - Jaundice [Unknown]
  - Vomiting [Unknown]
  - Hepatic function abnormal [Unknown]
  - Gastrointestinal disorder [Recovering/Resolving]
  - Skin lesion [Unknown]
  - General physical health deterioration [Unknown]

NARRATIVE: CASE EVENT DATE: 201002
